FAERS Safety Report 6309435-3 (Version None)
Quarter: 2009Q3

REPORT INFORMATION
  Report Type: 
  Country: None (occurrence: None)
  Receive Date: 20090811
  Receipt Date: 20090526
  Transmission Date: 20100115
  Serious: No
  Sender: FDA-Public Use
  Company Number: 1000006496

PATIENT
  Age: 55 Year
  Sex: Male

DRUGS (5)
  1. SAVELLA [Suspect]
     Indication: FIBROMYALGIA
     Dosage: (1 IN 1 D),ORAL; 25 MG (12.5 MG, 2 IN 1 D),ORAL; 50 MG (25 MG, 2 IN 1 D),ORAL
     Route: 048
     Dates: start: 20081205, end: 20081205
  2. SAVELLA [Suspect]
     Indication: FIBROMYALGIA
     Dosage: (1 IN 1 D),ORAL; 25 MG (12.5 MG, 2 IN 1 D),ORAL; 50 MG (25 MG, 2 IN 1 D),ORAL
     Route: 048
     Dates: start: 20090513, end: 20090514
  3. SAVELLA [Suspect]
     Indication: FIBROMYALGIA
     Dosage: (1 IN 1 D),ORAL; 25 MG (12.5 MG, 2 IN 1 D),ORAL; 50 MG (25 MG, 2 IN 1 D),ORAL
     Route: 048
     Dates: start: 20090515, end: 20090518
  4. OXYCONTIN [Concomitant]
  5. LYRICA [Concomitant]

REACTIONS (2)
  - BLISTER [None]
  - HAEMORRHOIDS [None]
